FAERS Safety Report 6672692-8 (Version None)
Quarter: 2010Q2

REPORT INFORMATION
  Report Type: 
  Country: None (occurrence: None)
  Receive Date: 20100408
  Receipt Date: 20100330
  Transmission Date: 20101027
  Serious: Yes (Other)
  Sender: FDA-Public Use
  Company Number: JP-PFIZER INC-2010030240

PATIENT
  Age: 71 Year
  Sex: Female

DRUGS (2)
  1. DALACIN [Suspect]
     Dosage: 1.2 G, DAILY
  2. MODACIN [Suspect]
     Dosage: 2 G, DAILY

REACTIONS (2)
  - ACUTE GENERALISED EXANTHEMATOUS PUSTULOSIS [None]
  - RENAL FAILURE ACUTE [None]
